FAERS Safety Report 16582019 (Version 1)
Quarter: 2019Q3

REPORT INFORMATION
  Report Type: Spontaneous
  Country: US (occurrence: US)
  Receive Date: 20190603
  Receipt Date: 20190603
  Transmission Date: 20191004
  Serious: Yes (Hospitalization)
  Sender: FDA-Public Use
  Company Number: None

PATIENT
  Age: 86 Year
  Sex: Female
  Weight: 95 kg

DRUGS (1)
  1. FUROSEMIDE. [Suspect]
     Active Substance: FUROSEMIDE
     Indication: CARDIAC FAILURE CONGESTIVE
     Route: 048
     Dates: start: 20190109, end: 20190218

REACTIONS (8)
  - Hypokalaemia [None]
  - Acute kidney injury [None]
  - Brain natriuretic peptide decreased [None]
  - Hypovolaemia [None]
  - Dyspnoea [None]
  - Therapy change [None]
  - Peripheral swelling [None]
  - Fluid overload [None]

NARRATIVE: CASE EVENT DATE: 20190218
